FAERS Safety Report 6388900-7 (Version None)
Quarter: 2009Q4

REPORT INFORMATION
  Report Type: 
  Country: None (occurrence: None)
  Receive Date: 20091005
  Receipt Date: 20090924
  Transmission Date: 20100525
  Serious: Yes (Hospitalization, Other)
  Sender: FDA-Public Use
  Company Number: CH-ELI_LILLY_AND_COMPANY-CH200909005620

PATIENT
  Age: 69 Year
  Sex: Female

DRUGS (13)
  1. ZYPREXA [Suspect]
     Dosage: 10 MG, DAILY (1/D)
     Route: 048
     Dates: start: 20090520, end: 20090604
  2. ZYPREXA [Suspect]
     Dosage: 5 MG, DAILY (1/D)
     Route: 048
     Dates: start: 20090605
  3. RISPERDAL [Concomitant]
     Dosage: 0.25 MG, DAILY (1/D)
     Route: 048
     Dates: start: 20090610, end: 20090618
  4. RISPERDAL [Concomitant]
     Dosage: 0.5 MG, DAILY (1/D)
     Route: 048
     Dates: start: 20090619, end: 20090623
  5. RISPERDAL [Concomitant]
     Dosage: 0.25 MG, DAILY (1/D)
     Route: 048
     Dates: start: 20090624, end: 20090626
  6. RISPERDAL [Concomitant]
     Dosage: 0.25 MG, DAILY (1/D)
     Route: 048
     Dates: start: 20090629, end: 20090701
  7. RISPERDAL [Concomitant]
     Dosage: 0.5 MG, DAILY (1/D)
     Route: 048
     Dates: start: 20090702, end: 20090706
  8. LAMICTAL [Concomitant]
     Dosage: 25 MG, DAILY (1/D)
     Route: 048
     Dates: start: 20090520, end: 20090602
  9. LAMICTAL [Concomitant]
     Dosage: 37.5 MG, DAILY (1/D)
     Route: 048
     Dates: start: 20090603, end: 20090626
  10. LAMICTAL [Concomitant]
     Dosage: 50 MG, DAILY (1/D)
     Route: 048
     Dates: start: 20090627
  11. ASPIRIN [Concomitant]
     Dosage: 100 MG, UNK
     Route: 048
     Dates: start: 20070101
  12. DIPIPERON [Concomitant]
     Dosage: 60 MG, DAILY (1/D)
     Route: 048
     Dates: start: 20090406
  13. AKINETON /00079503/ [Concomitant]
     Dosage: UNK, UNKNOWN
     Dates: start: 20090727, end: 20090728

REACTIONS (7)
  - AGGRESSION [None]
  - ANTICHOLINERGIC SYNDROME [None]
  - CEREBRAL ATROPHY [None]
  - DRUG INEFFECTIVE [None]
  - DYSKINESIA [None]
  - ELECTROCARDIOGRAM ST SEGMENT DEPRESSION [None]
  - MOANING [None]
